FAERS Safety Report 5881514-4 (Version None)
Quarter: 2008Q3

REPORT INFORMATION
  Report Type: 
  Country: None (occurrence: None)
  Receive Date: 20080911
  Receipt Date: 20080901
  Transmission Date: 20090109
  Serious: Yes (Death)
  Sender: FDA-Public Use
  Company Number: GXKR2008US08300

PATIENT
  Age: 61 Year
  Sex: Male

DRUGS (9)
  1. MYCOPHENOLATE MOFETIL [Suspect]
     Indication: IMMUNOSUPPRESSION
  2. PREDNISONE TAB [Suspect]
     Indication: IMMUNOSUPPRESSION
  3. SULFAMETHOXAZOLE AND TRIMETHOPRIM [Suspect]
     Indication: ANTIFUNGAL PROPHYLAXIS
  4. TACROLIMUS [Suspect]
     Indication: IMMUNOSUPPRESSION
  5. MICAFUNGIN (MICAFUNGIN) [Suspect]
     Indication: ANTIFUNGAL PROPHYLAXIS
     Dosage: 100 MG/DAY, INTRAVENOUS
     Route: 042
  6. DAPTOMYCIN (DAPTOMYCIN) [Suspect]
     Indication: ENTEROCOCCAL BACTERAEMIA
  7. MEROPENEM (MEROPENEM) [Suspect]
     Indication: ESCHERICHIA BACTERAEMIA
  8. CEFEPIME [Suspect]
     Indication: ESCHERICHIA BACTERAEMIA
  9. GANCICLOVIR [Concomitant]

REACTIONS (10)
  - ABDOMINAL DISTENSION [None]
  - CYTOMEGALOVIRUS VIRAEMIA [None]
  - DERMATITIS BULLOUS [None]
  - ECCHYMOSIS [None]
  - ENTEROCOCCAL BACTERAEMIA [None]
  - GENERALISED OEDEMA [None]
  - INFECTION IN AN IMMUNOCOMPROMISED HOST [None]
  - MULTI-ORGAN FAILURE [None]
  - PLEURAL EFFUSION [None]
  - SEPTIC SHOCK [None]
